FAERS Safety Report 13959828 (Version 1)
Quarter: 2017Q3

REPORT INFORMATION
  Report Type: Report from Study
  Country: US (occurrence: US)
  Receive Date: 20170912
  Receipt Date: 20170912
  Transmission Date: 20171128
  Serious: Yes (Hospitalization)
  Sender: FDA-Public Use
  Company Number: US-EISAI MEDICAL RESEARCH-EC-2017-031070

PATIENT
  Age: 74 Year
  Sex: Female
  Weight: 68.5 kg

DRUGS (12)
  1. ERIBULIN [Suspect]
     Active Substance: ERIBULIN
     Indication: BREAST CANCER METASTATIC
     Route: 041
     Dates: start: 20170825
  2. VITAMIN D3 [Concomitant]
     Active Substance: CHOLECALCIFEROL
  3. LOVENOX [Concomitant]
     Active Substance: ENOXAPARIN SODIUM
  4. FISH OIL [Concomitant]
     Active Substance: FISH OIL
  5. SYNTHROID [Concomitant]
     Active Substance: LEVOTHYROXINE SODIUM
  6. COMPAZINE [Concomitant]
     Active Substance: PROCHLORPERAZINE MALEATE
  7. PEMBROLIZUMAB. [Suspect]
     Active Substance: PEMBROLIZUMAB
     Indication: BREAST CANCER METASTATIC
     Route: 041
     Dates: start: 20170825
  8. CLOBEX [Concomitant]
     Active Substance: CLOBETASOL PROPIONATE
  9. CELEXA [Concomitant]
     Active Substance: CITALOPRAM HYDROBROMIDE
  10. KLOR-CON [Concomitant]
     Active Substance: POTASSIUM CHLORIDE
  11. MULTIVITAMIN [Concomitant]
     Active Substance: VITAMINS
  12. PRAMOXINE [Concomitant]
     Active Substance: PRAMOXINE

REACTIONS (3)
  - Hypotension [Recovered/Resolved]
  - Decreased appetite [Recovered/Resolved]
  - Diarrhoea [Recovered/Resolved]

NARRATIVE: CASE EVENT DATE: 20170908
